FAERS Safety Report 22139592 (Version 1)
Quarter: 2023Q1

REPORT INFORMATION
  Report Type: Spontaneous
  Country: US (occurrence: US)
  Receive Date: 20230327
  Receipt Date: 20230327
  Transmission Date: 20230417
  Serious: No
  Sender: FDA-Public Use
  Company Number: ALC2023US000559

PATIENT
  Age: 65 Year
  Sex: Male

DRUGS (1)
  1. PATADAY ONCE DAILY RELIEF [Suspect]
     Active Substance: OLOPATADINE HYDROCHLORIDE
     Indication: Product used for unknown indication
     Dosage: 1 DRP EACH EYE ONCE A DAY FOR 2 DAYS,THEN 1  DROP TWICE A DAY
     Route: 047
     Dates: start: 20230105

REACTIONS (1)
  - Drug ineffective [Unknown]
